FAERS Safety Report 6771501-6 (Version None)
Quarter: 2010Q2

REPORT INFORMATION
  Report Type: 
  Country: None (occurrence: None)
  Receive Date: 20100611
  Receipt Date: 20100602
  Transmission Date: 20101027
  Serious: Yes (Hospitalization)
  Sender: FDA-Public Use
  Company Number: 2010SP031060

PATIENT
  Age: 30 Year
  Sex: Female
  Weight: 63 kg

DRUGS (2)
  1. CHORIONIC GONADOTROPIN [Suspect]
     Indication: OVULATION INDUCTION
     Dosage: 5000 IU; ONCE
  2. HUMAN MENOPAUSAL GONADOTROPIN (OTHER MANUFACTURER) (GONADOTROPINS) [Suspect]
     Indication: OVULATION INDUCTION
     Dosage: 300 IU;QD; IM
     Route: 030

REACTIONS (4)
  - HAEMORRHAGIC ASCITES [None]
  - OVARIAN HYPERSTIMULATION SYNDROME [None]
  - OVARIAN NECROSIS [None]
  - OVARIAN TORSION [None]
